FAERS Safety Report 7514640-4 (Version None)
Quarter: 2011Q2

REPORT INFORMATION
  Report Type: 
  Country: None (occurrence: None)
  Receive Date: 20110601
  Receipt Date: 20110517
  Transmission Date: 20111010
  Serious: Yes (Hospitalization, Other)
  Sender: FDA-Public Use
  Company Number: US-BAYER-2011-026214

PATIENT
  Age: 30 Year
  Sex: Female
  Weight: 83.447 kg

DRUGS (13)
  1. VOLTAREN [Concomitant]
     Dosage: 75 MG, BID
     Route: 048
     Dates: start: 20060606
  2. YAZ [Suspect]
     Indication: PREMENSTRUAL SYNDROME
  3. ADVIL LIQUI-GELS [Concomitant]
  4. PHENERGAN HCL [Concomitant]
     Dosage: 25 MG, UNK
     Route: 048
     Dates: start: 20070326
  5. SKELAXIN [Concomitant]
     Dosage: UNK UNK, TID
     Route: 048
     Dates: start: 20070618
  6. YAZ [Suspect]
     Indication: CONTRACEPTION
     Dosage: UNK UNK, QD
     Route: 048
     Dates: start: 20070206, end: 20070601
  7. LEXAPRO [Concomitant]
     Dosage: 10 MG, QD
     Route: 048
  8. MAXALT [Concomitant]
     Dosage: 10 MG, PRN
     Route: 048
     Dates: start: 20061130, end: 20080601
  9. EXCEDRIN (MIGRAINE) [Concomitant]
  10. AXERT [Concomitant]
     Dosage: 12.5 MG, UNK
     Route: 048
     Dates: start: 20061106
  11. CELEBREX [Concomitant]
     Dosage: 200 MG, BID
  12. YAZ [Suspect]
     Indication: ACNE
  13. SYNTHROID [Concomitant]
     Dosage: UNK UNK, OM
     Route: 048
     Dates: start: 20030101

REACTIONS (6)
  - EMOTIONAL DISTRESS [None]
  - DEEP VEIN THROMBOSIS [None]
  - OEDEMA PERIPHERAL [None]
  - POOR PERIPHERAL CIRCULATION [None]
  - PAIN IN EXTREMITY [None]
  - INJURY [None]
